FAERS Safety Report 8169310-9 (Version None)
Quarter: 2012Q1

REPORT INFORMATION
  Report Type: 
  Country: None (occurrence: None)
  Receive Date: 20120228
  Receipt Date: 20120221
  Transmission Date: 20120608
  Serious: No
  Sender: FDA-Public Use
  Company Number: US-BIOGENIDEC-2012BI004769

PATIENT
  Age: 33 Year
  Sex: Female

DRUGS (1)
  1. AVONEX [Suspect]
     Indication: MULTIPLE SCLEROSIS
     Route: 030
     Dates: start: 20111021

REACTIONS (7)
  - FALL [None]
  - INFLUENZA LIKE ILLNESS [None]
  - COORDINATION ABNORMAL [None]
  - TREMOR [None]
  - MUSCULAR WEAKNESS [None]
  - BALANCE DISORDER [None]
  - MUSCLE SPASTICITY [None]
